FAERS Safety Report 24109964 (Version 1)
Quarter: 2024Q3

REPORT INFORMATION
  Report Type: Spontaneous
  Country: ES (occurrence: ES)
  Receive Date: 20240718
  Receipt Date: 20240718
  Transmission Date: 20241017
  Serious: Yes (Other)
  Sender: JOHNSON AND JOHNSON
  Company Number: ES-MYLANLABS-2024M1063987

PATIENT
  Age: 89 Year
  Sex: Female
  Weight: 38.56 kg

DRUGS (2)
  1. RISPERDAL [Suspect]
     Active Substance: RISPERIDONE
     Indication: Dementia
     Dosage: 1 MILLIGRAM, PM
     Route: 065
  2. RISPERDAL [Suspect]
     Active Substance: RISPERIDONE
     Dosage: 0.5 MILLIGRAM, AM
     Route: 065

REACTIONS (7)
  - Fatigue [Unknown]
  - Depressed mood [Unknown]
  - Hallucination [Unknown]
  - Agitation [Unknown]
  - Cognitive disorder [Unknown]
  - Feeling abnormal [Unknown]
  - Lethargy [Unknown]
